FAERS Safety Report 4810026-1 (Version None)
Quarter: 2005Q4

REPORT INFORMATION
  Report Type: 
  Country: None (occurrence: None)
  Receive Date: 20051026
  Receipt Date: 20051014
  Transmission Date: 20060501
  Serious: Yes (Other)
  Sender: FDA-Public Use
  Company Number: DE-BRISTOL-MYERS SQUIBB COMPANY-13145644

PATIENT
  Sex: Female

DRUGS (3)
  1. AMPHO-MORONAL TABS [Suspect]
     Dosage: 50 TABLETS TOTAL TAKEN ^OVER A LONGER TIME PERIOD.^
     Route: 048
  2. FELODIPINE [Suspect]
     Route: 048
  3. PHENPROCOUMON [Suspect]
     Route: 048

REACTIONS (1)
  - HEPATITIS [None]
